FAERS Safety Report 25621257 (Version 1)
Quarter: 2025Q3

REPORT INFORMATION
  Report Type: Spontaneous
  Country: MY (occurrence: MY)
  Receive Date: 20250730
  Receipt Date: 20250730
  Transmission Date: 20251020
  Serious: Yes (Other)
  Sender: NOVARTIS
  Company Number: MY-002147023-NVSC2025MY117663

PATIENT
  Age: 69 Year
  Sex: Female

DRUGS (1)
  1. RIBOCICLIB [Suspect]
     Active Substance: RIBOCICLIB
     Indication: Breast cancer metastatic
     Dosage: 400 MG, QD
     Route: 048

REACTIONS (4)
  - Sinus arrhythmia [Recovering/Resolving]
  - Heart rate irregular [Recovering/Resolving]
  - Ventricular extrasystoles [Recovering/Resolving]
  - Cardiomegaly [Recovering/Resolving]
